FAERS Safety Report 19065109 (Version 2)
Quarter: 2021Q2

REPORT INFORMATION
  Report Type: Spontaneous
  Country: US (occurrence: US)
  Receive Date: 20210327
  Receipt Date: 20210427
  Transmission Date: 20210717
  Serious: No
  Sender: FDA-Public Use
  Company Number: US-UNITED THERAPEUTICS-UNT-2021-004941

PATIENT
  Sex: Female

DRUGS (3)
  1. TYVASO [Suspect]
     Active Substance: TREPROSTINIL
     Dosage: 72 ?G, QID
  2. TYVASO [Suspect]
     Active Substance: TREPROSTINIL
     Indication: PULMONARY ARTERIAL HYPERTENSION
     Dosage: UNK
     Dates: start: 20210225
  3. TYVASO [Suspect]
     Active Substance: TREPROSTINIL
     Dosage: 54 ?G, QID

REACTIONS (11)
  - Chest pain [Unknown]
  - Lethargy [Recovered/Resolved]
  - Nausea [Recovered/Resolved]
  - Pulmonary pain [Recovered/Resolved]
  - Productive cough [Not Recovered/Not Resolved]
  - Stress urinary incontinence [Unknown]
  - Cough [Unknown]
  - Headache [Recovered/Resolved]
  - Asthma [Unknown]
  - Off label use [Unknown]
  - Asthenia [Recovered/Resolved]
